FAERS Safety Report 8926053 (Version 1)
Quarter: 2012Q4

REPORT INFORMATION
  Report Type: 
  Country: US (occurrence: US)
  Receive Date: 20121126
  Receipt Date: 20121126
  Transmission Date: 20130627
  Serious: Yes (Other)
  Sender: FDA-Public Use
  Company Number: US-BAYER-2012-122602

PATIENT
  Age: 1 Year
  Sex: Female
  Weight: 9.07 kg

DRUGS (1)
  1. RID SHAMPOO [Suspect]
     Dosage: UNK
     Route: 048
     Dates: start: 20121120

REACTIONS (3)
  - Vomiting [Recovered/Resolved]
  - Incorrect route of drug administration [None]
  - Accidental exposure to product by child [None]
